FAERS Safety Report 8443815-5 (Version None)
Quarter: 2012Q2

REPORT INFORMATION
  Report Type: 
  Country: None (occurrence: None)
  Receive Date: 20120323
  Receipt Date: 20110610
  Transmission Date: 20120825
  Serious: Yes (Hospitalization)
  Sender: FDA-Public Use
  Company Number: 163-21880-11061645

PATIENT
  Age: 54 Year
  Sex: Male

DRUGS (8)
  1. SERTRALINE HYDROCHLORIDE [Concomitant]
  2. OXYCODONE HCL [Concomitant]
  3. AMLODIPINE [Concomitant]
  4. REVLIMID [Suspect]
     Indication: MULTIPLE MYELOMA
     Dosage: 25 MG, QD, X21 DAYS, PO
     Route: 048
     Dates: start: 20110419, end: 20110501
  5. ASPIRIN [Concomitant]
  6. DOCUSATE (DOCUSATE) [Concomitant]
  7. HYDROXYZINE (HYDROZYZINE) [Concomitant]
  8. PEPCID [Concomitant]

REACTIONS (2)
  - INFECTION [None]
  - PLATELET COUNT DECREASED [None]
